FAERS Safety Report 4401268-8 (Version None)
Quarter: 2004Q3

REPORT INFORMATION
  Report Type: 
  Country: None (occurrence: None)
  Receive Date: 20040907
  Receipt Date: 20040129
  Transmission Date: 20050211
  Serious: No
  Sender: FDA-Public Use
  Company Number: US-BRISTOL-MYERS SQUIBB COMPANY-12491213

PATIENT
  Age: 74 Year
  Sex: Male
  Weight: 73 kg

DRUGS (5)
  1. COUMADIN [Suspect]
     Indication: ATRIAL FIBRILLATION
     Route: 048
     Dates: start: 20040127
  2. NORVASC [Concomitant]
  3. LIPITOR [Concomitant]
  4. CARDIZEM [Concomitant]
  5. ALTACE [Concomitant]

REACTIONS (1)
  - FLUSHING [None]
